FAERS Safety Report 9054088 (Version 1)
Quarter: 2013Q1

REPORT INFORMATION
  Report Type: Spontaneous
  Country: RO (occurrence: RO)
  Receive Date: 20130208
  Receipt Date: 20130208
  Transmission Date: 20140127
  Serious: Yes (Other)
  Sender: FDA-Public Use
  Company Number: RO-JNJFOC-20130201281

PATIENT
  Age: 71 None
  Sex: Male

DRUGS (6)
  1. REMICADE [Suspect]
     Indication: RHEUMATOID ARTHRITIS
     Dosage: 3 BOTTLES
     Route: 042
     Dates: start: 20121023, end: 20121023
  2. REMICADE [Suspect]
     Indication: RHEUMATOID ARTHRITIS
     Dosage: 3 BOTTLES
     Route: 042
     Dates: start: 200811
  3. METHOTREXATE [Concomitant]
     Route: 030
  4. DICLOFENAC [Concomitant]
     Route: 065
  5. ALL OTHER THERAPEUTICS [Concomitant]
     Indication: ISCHAEMIC STROKE
     Route: 065
  6. ALL OTHER THERAPEUTICS [Concomitant]
     Indication: MYOCARDIAL INFARCTION
     Route: 065

REACTIONS (3)
  - Back pain [Recovered/Resolved]
  - Dyspnoea [Recovered/Resolved]
  - Infusion related reaction [Recovered/Resolved]
